FAERS Safety Report 5120138-3 (Version None)
Quarter: 2006Q4

REPORT INFORMATION
  Report Type: 
  Country: None (occurrence: None)
  Receive Date: 20061002
  Receipt Date: 20061002
  Transmission Date: 20070319
  Serious: Yes (Hospitalization)
  Sender: FDA-Public Use
  Company Number: None

PATIENT
  Age: 57 Year
  Sex: Male
  Weight: 72.1219 kg

DRUGS (2)
  1. ZOCOR [Suspect]
     Dosage: 20 MG 1 TIME DAILY PO
     Route: 048
  2. PREVACID [Suspect]
     Dosage: 30 MG 1 TIME DAILY PO
     Route: 048

REACTIONS (12)
  - ASTHENIA [None]
  - COLD SWEAT [None]
  - DIZZINESS [None]
  - FATIGUE [None]
  - GAIT DISTURBANCE [None]
  - HEADACHE [None]
  - HEAT EXHAUSTION [None]
  - HYPOGLYCAEMIA [None]
  - MOVEMENT DISORDER [None]
  - MUSCLE SPASMS [None]
  - PAIN IN EXTREMITY [None]
  - VISUAL DISTURBANCE [None]
